FAERS Safety Report 5924142-4 (Version None)
Quarter: 2008Q4

REPORT INFORMATION
  Report Type: 
  Country: None (occurrence: None)
  Receive Date: 20081015
  Receipt Date: 20080930
  Transmission Date: 20090506
  Serious: Yes (Other)
  Sender: FDA-Public Use
  Company Number: 2008S1014285

PATIENT
  Age: 52 Year
  Sex: Female

DRUGS (1)
  1. AZATHIOPRINE [Suspect]
     Indication: CROHN'S DISEASE
     Dosage: 50 MG; ORAL; TWICE A DAY ORAL
     Route: 048

REACTIONS (2)
  - HYPERSENSITIVITY [None]
  - SEPTAL PANNICULITIS [None]
